FAERS Safety Report 6530761-7 (Version None)
Quarter: 2010Q1

REPORT INFORMATION
  Report Type: 
  Country: None (occurrence: None)
  Receive Date: 20100108
  Receipt Date: 20090128
  Transmission Date: 20100710
  Serious: No
  Sender: FDA-Public Use
  Company Number: A0765666A

PATIENT
  Age: 56 Year
  Sex: Female

DRUGS (7)
  1. LOVAZA [Suspect]
     Indication: BLOOD CHOLESTEROL INCREASED
     Dosage: 4CAP PER DAY
     Route: 048
     Dates: start: 20081001
  2. ARMOUR [Concomitant]
  3. CALCITRIOL [Concomitant]
  4. VITAMINS [Concomitant]
  5. PREVACID [Concomitant]
  6. ATIVAN [Concomitant]
  7. CALCIUM [Concomitant]

REACTIONS (4)
  - ABDOMINAL PAIN UPPER [None]
  - CONTUSION [None]
  - HEADACHE [None]
  - NAUSEA [None]
